FAERS Safety Report 7267810-7 (Version None)
Quarter: 2011Q1

REPORT INFORMATION
  Report Type: 
  Country: None (occurrence: None)
  Receive Date: 20110201
  Receipt Date: 20110121
  Transmission Date: 20110831
  Serious: Yes (Hospitalization, Other)
  Sender: FDA-Public Use
  Company Number: B0678519A

PATIENT
  Sex: Female

DRUGS (2)
  1. ARIXTRA [Suspect]
     Indication: THROMBOSIS PROPHYLAXIS
     Dosage: 2.5MG PER DAY
     Route: 058
     Dates: start: 20100706, end: 20100728
  2. NSAID [Concomitant]
     Route: 065
     Dates: start: 20100719, end: 20100928

REACTIONS (2)
  - POST PROCEDURAL HAEMATOMA [None]
  - CONNECTIVE TISSUE DISORDER [None]
